FAERS Safety Report 13597962 (Version 2)
Quarter: 2017Q2

REPORT INFORMATION
  Report Type: Spontaneous
  Country: JP (occurrence: JP)
  Receive Date: 20170531
  Receipt Date: 20170613
  Transmission Date: 20170830
  Serious: Yes (Other)
  Sender: FDA-Public Use
  Company Number: JP-PFIZER INC-2017238689

PATIENT
  Age: 69 Year
  Sex: Female
  Weight: 43 kg

DRUGS (8)
  1. AMLODIPINE BESILATE [Suspect]
     Active Substance: AMLODIPINE BESYLATE
     Dosage: 5 MG, DAILY
     Route: 048
  2. BISOPROLOL FUMARATE. [Concomitant]
     Active Substance: BISOPROLOL FUMARATE
     Dosage: 2.5 MG, 2X/DAY
     Route: 048
  3. LANSOPRAZOLE. [Suspect]
     Active Substance: LANSOPRAZOLE
     Dosage: 15 MG, DAILY
     Route: 048
  4. ASPIRIN. [Suspect]
     Active Substance: ASPIRIN
     Dosage: 100 MG, DAILY
     Route: 048
  5. MOSAPRIDE CITRATE HYDRATE [Suspect]
     Active Substance: MOSAPRIDE CITRATE DIHYDRATE
     Dosage: 5 MG, 3X/DAY
     Route: 048
  6. ATORVASTATIN CALCIUM HYDRATE [Concomitant]
     Active Substance: ATORVASTATIN CALCIUM
     Dosage: 10 MG, DAILY
     Route: 048
  7. ALFACALCIDOL [Concomitant]
     Active Substance: ALFACALCIDOL
     Dosage: 1.0 UG, 1X/DAY
     Route: 048
  8. LYRICA [Suspect]
     Active Substance: PREGABALIN
     Dosage: 75 MG, 2X/DAY
     Route: 048

REACTIONS (1)
  - Hypoglycaemia [Unknown]
